FAERS Safety Report 25553350 (Version 1)
Quarter: 2025Q3

REPORT INFORMATION
  Report Type: Spontaneous
  Country: US (occurrence: US)
  Receive Date: 20250715
  Receipt Date: 20250715
  Transmission Date: 20251021
  Serious: No
  Sender: DIFGEN PHARMACEUTICALS LLC
  Company Number: US-Difgen-012077

PATIENT

DRUGS (1)
  1. NICOTINE [Suspect]
     Active Substance: NICOTINE
     Indication: Product used for unknown indication
     Dosage: NDC NUMBER: 0536-5896-88
     Route: 062

REACTIONS (4)
  - Skin injury [Unknown]
  - Product adhesion issue [Unknown]
  - Product colour issue [Unknown]
  - Product dosage form issue [Unknown]

NARRATIVE: CASE EVENT DATE: 20250101
